FAERS Safety Report 8577506-7 (Version None)
Quarter: 2012Q3

REPORT INFORMATION
  Report Type: 
  Country: None (occurrence: None)
  Receive Date: 20120807
  Receipt Date: 20120801
  Transmission Date: 20120928
  Serious: Yes (Other)
  Sender: FDA-Public Use
  Company Number: VE-ROCHE-1096406

PATIENT
  Sex: Female

DRUGS (4)
  1. ANTIHYPERTENSIVE [Concomitant]
  2. ANTIBIOTICS (UNSPECIFIED) [Concomitant]
  3. ACTEMRA [Suspect]
     Indication: RHEUMATOID ARTHRITIS
     Route: 041
     Dates: start: 20110920, end: 20120624
  4. HYPOGLYCEMICS [Concomitant]

REACTIONS (5)
  - BACK PAIN [None]
  - HYPERGLYCAEMIA [None]
  - NEPHROLITHIASIS [None]
  - URINARY TRACT INFECTION [None]
  - HYPERTENSION [None]
